FAERS Safety Report 6790976-X (Version None)
Quarter: 2010Q2

REPORT INFORMATION
  Report Type: 
  Country: None (occurrence: None)
  Receive Date: 20100624
  Receipt Date: 20100618
  Transmission Date: 20101027
  Serious: Yes (Other)
  Sender: FDA-Public Use
  Company Number: US-MERCK-1005USA02260

PATIENT
  Age: 60 Year
  Sex: Female
  Weight: 78 kg

DRUGS (2)
  1. HYZAAR [Suspect]
     Indication: HYPERTENSION
     Route: 048
  2. HYZAAR [Suspect]
     Route: 048
     Dates: start: 20070901

REACTIONS (3)
  - ASPARTATE AMINOTRANSFERASE ABNORMAL [None]
  - BLOOD CALCIUM INCREASED [None]
  - THYROID NEOPLASM [None]
